FAERS Safety Report 11390868 (Version 1)
Quarter: 2015Q3

REPORT INFORMATION
  Report Type: Spontaneous
  Country: IT (occurrence: None)
  Receive Date: 20150813
  Receipt Date: 20150813
  Transmission Date: 20151125
  Serious: Yes (Life-Threatening)
  Sender: FDA-Public Use
  Company Number: 2015RR-101427

PATIENT
  Age: 57 Year
  Sex: Male

DRUGS (2)
  1. METFORMIN (METFORMIN) UNKNOWN, UNKNOWN [Suspect]
     Active Substance: METFORMIN HYDROCHLORIDE
     Indication: TYPE 2 DIABETES MELLITUS
  2. RAMIPRIL. [Suspect]
     Active Substance: RAMIPRIL
     Indication: HYPERTENSION

REACTIONS (2)
  - Metabolic acidosis [None]
  - Acute kidney injury [None]

NARRATIVE: CASE EVENT DATE: 20150701
